FAERS Safety Report 24598486 (Version 1)
Quarter: 2024Q4

REPORT INFORMATION
  Report Type: Spontaneous
  Country: US (occurrence: US)
  Receive Date: 20241110
  Receipt Date: 20241110
  Transmission Date: 20250115
  Serious: No
  Sender: SANOFI AVENTIS
  Company Number: US-SA-2024SA233906

PATIENT
  Sex: Female
  Weight: 48 kg

DRUGS (1)
  1. DUPIXENT [Suspect]
     Active Substance: DUPILUMAB
     Indication: Dermatitis atopic
     Dosage: 200 MG, QOW
     Route: 058

REACTIONS (4)
  - Dermatitis atopic [Unknown]
  - Dandruff [Recovering/Resolving]
  - Pruritus [Recovering/Resolving]
  - Therapeutic response shortened [Unknown]
